FAERS Safety Report 9323893 (Version 1)
Quarter: 2013Q2

REPORT INFORMATION
  Report Type: Spontaneous
  Country: US (occurrence: US)
  Receive Date: 20130603
  Receipt Date: 20130603
  Transmission Date: 20140414
  Serious: Yes (Other)
  Sender: FDA-Public Use
  Company Number: US-PFIZER INC-2013163137

PATIENT
  Age: 56 Year
  Sex: Female

DRUGS (8)
  1. LEVOXYL [Suspect]
     Indication: AUTOIMMUNE THYROIDITIS
     Dosage: 100 UG, 1X/DAY (1 IN 1D)
     Route: 048
     Dates: start: 201303, end: 20130405
  2. ARMOUR THYROID [Suspect]
     Indication: AUTOIMMUNE THYROIDITIS
     Dosage: 60 MG, 1X/DAY (L IN 1 D)
     Route: 048
     Dates: start: 2001, end: 201303
  3. ARMOUR THYROID [Suspect]
     Dosage: 60 MG, 1X/DAY (L IN 1 D)
     Route: 048
     Dates: start: 20130406, end: 20130423
  4. ARMOUR THYROID [Suspect]
     Dosage: 75 MG, 1X/DAY (L IN 1 D)
     Route: 048
     Dates: start: 20130424, end: 20130428
  5. ARMOUR THYROID [Suspect]
     Dosage: 60 MG, 1X/DAY (L IN 1 D)
     Route: 048
     Dates: start: 20130429
  6. DILTIAZEM [Concomitant]
     Indication: ATRIAL FIBRILLATION
     Dosage: UNK
     Dates: start: 2005
  7. SIMVASTATIN [Concomitant]
     Indication: BLOOD CHOLESTEROL INCREASED
     Dosage: UNK
  8. XANAX [Concomitant]
     Indication: ANXIETY
     Dosage: AS NEEDED

REACTIONS (14)
  - Atrial fibrillation [Recovered/Resolved]
  - Thyroid neoplasm [Recovered/Resolved]
  - Condition aggravated [Recovered/Resolved]
  - Feeling jittery [Recovered/Resolved]
  - Tremor [Recovered/Resolved]
  - Blood pressure fluctuation [Not Recovered/Not Resolved]
  - Dizziness [Not Recovered/Not Resolved]
  - Dyspnoea [Not Recovered/Not Resolved]
  - Insomnia [Not Recovered/Not Resolved]
  - Hyperhidrosis [Not Recovered/Not Resolved]
  - Muscular weakness [Not Recovered/Not Resolved]
  - Increased appetite [Not Recovered/Not Resolved]
  - Heart rate irregular [Not Recovered/Not Resolved]
  - Headache [Not Recovered/Not Resolved]
